FAERS Safety Report 15450094 (Version 1)
Quarter: 2018Q4

REPORT INFORMATION
  Report Type: Spontaneous
  Country: US (occurrence: US)
  Receive Date: 20181001
  Receipt Date: 20181001
  Transmission Date: 20190204
  Serious: No
  Sender: FDA-Public Use
  Company Number: US-PFIZER INC-2018391526

PATIENT
  Age: 69 Year

DRUGS (1)
  1. LYRICA CR [Suspect]
     Active Substance: PREGABALIN
     Dosage: UNK (TAKE 3 TABLETS TO DAY, I WAS TAKING 1 OR 2)

REACTIONS (1)
  - Malaise [Unknown]
